FAERS Safety Report 8476118-3 (Version None)
Quarter: 2012Q2

REPORT INFORMATION
  Report Type: 
  Country: None (occurrence: None)
  Receive Date: 20120628
  Receipt Date: 20120620
  Transmission Date: 20120825
  Serious: Yes (Other)
  Sender: FDA-Public Use
  Company Number: US-TEVA-344806USA

PATIENT
  Sex: Female

DRUGS (2)
  1. NORGESTIMATE AND ETHINYL ESTRADIOL [Concomitant]
  2. CLARAVIS [Suspect]
     Dosage: 40 MILLIGRAM;
     Dates: start: 20120123, end: 20120620

REACTIONS (1)
  - UNINTENDED PREGNANCY [None]
